FAERS Safety Report 7435114-5 (Version None)
Quarter: 2011Q2

REPORT INFORMATION
  Report Type: 
  Country: None (occurrence: None)
  Receive Date: 20110425
  Receipt Date: 20110411
  Transmission Date: 20111010
  Serious: Yes (Other)
  Sender: FDA-Public Use
  Company Number: PHHY2011BR31270

PATIENT
  Sex: Male
  Weight: 68 kg

DRUGS (1)
  1. DIOVAN [Suspect]
     Indication: HYPERTENSION
     Dosage: 1 DF, 320 MG DAILY
     Route: 048

REACTIONS (7)
  - ISCHAEMIA [None]
  - HEADACHE [None]
  - HYPERTENSION [None]
  - DRUG INEFFECTIVE [None]
  - CEREBROVASCULAR ACCIDENT [None]
  - HEMIPLEGIA [None]
  - NAUSEA [None]
